FAERS Safety Report 10251640 (Version 1)
Quarter: 2014Q2

REPORT INFORMATION
  Report Type: Spontaneous
  Country: CY (occurrence: CY)
  Receive Date: 20140623
  Receipt Date: 20140623
  Transmission Date: 20141212
  Serious: Yes (Other)
  Sender: FDA-Public Use
  Company Number: CY-BIOGENIDEC-2014BI059061

PATIENT
  Sex: Male
  Weight: 2 kg

DRUGS (2)
  1. TYSABRI [Suspect]
     Indication: MATERNAL EXPOSURE TIMING UNSPECIFIED
     Route: 064
     Dates: start: 20080521, end: 20130430
  2. METHYLPREDNISOLONE [Concomitant]
     Route: 064

REACTIONS (1)
  - Cleft lip and palate [Unknown]
